FAERS Safety Report 8245594-3 (Version None)
Quarter: 2012Q1

REPORT INFORMATION
  Report Type: 
  Country: None (occurrence: None)
  Receive Date: 20120330
  Receipt Date: 20120322
  Transmission Date: 20120608
  Serious: Yes (Hospitalization, Other)
  Sender: FDA-Public Use
  Company Number: DE-BRISTOL-MYERS SQUIBB COMPANY-16327959

PATIENT
  Age: 52 Year
  Sex: Male
  Weight: 61 kg

DRUGS (1)
  1. YERVOY [Suspect]
     Indication: MALIGNANT MELANOMA
     Dosage: 3MG/KG,THERAPY DATES 29SEP11
     Route: 042
     Dates: start: 20110909

REACTIONS (2)
  - SKIN TOXICITY [None]
  - DIARRHOEA [None]
